FAERS Safety Report 16989321 (Version 1)
Quarter: 2019Q4

REPORT INFORMATION
  Report Type: Spontaneous
  Country: US (occurrence: US)
  Receive Date: 20190919
  Receipt Date: 20190919
  Transmission Date: 20200122
  Serious: Yes (Hospitalization)
  Sender: FDA-Public Use
  Company Number: None

PATIENT
  Sex: Male

DRUGS (1)
  1. RYDAPT [Suspect]
     Active Substance: MIDOSTAURIN
     Indication: MULTIPLE SCLEROSIS
     Dosage: ?          OTHER DOSE:0.5MG;?
     Route: 048
     Dates: start: 20180209

REACTIONS (5)
  - Pneumonia [None]
  - Macular oedema [None]
  - Unresponsive to stimuli [None]
  - Swelling [None]
  - Eyelid cyst [None]
